FAERS Safety Report 10621413 (Version 2)
Quarter: 2021Q1

REPORT INFORMATION
  Report Type: Spontaneous
  Country: US (occurrence: US)
  Receive Date: 20141203
  Receipt Date: 20210310
  Transmission Date: 20210419
  Serious: Yes (Hospitalization)
  Sender: FDA-Public Use
  Company Number: US-AUROBINDO-AUR-APL-2014-12577

PATIENT
  Age: 51 Year
  Sex: Female

DRUGS (5)
  1. MEPIVACAINE [Suspect]
     Active Substance: MEPIVACAINE HYDROCHLORIDE
     Indication: PRODUCT USED FOR UNKNOWN INDICATION
     Dosage: 30ML OF 1.5%
     Route: 042
  2. EPINEPHRINE. [Concomitant]
     Active Substance: EPINEPHRINE
     Indication: PRODUCT USED FOR UNKNOWN INDICATION
     Dosage: 1:200,000
     Route: 065
  3. BUPIVACAINE HYDROCHLORIDE. [Suspect]
     Active Substance: BUPIVACAINE HYDROCHLORIDE
     Indication: PRODUCT USED FOR UNKNOWN INDICATION
     Dosage: 0.125 %,INFUSION RATE OF 6 ML/HR
     Route: 065
  4. LIDOCAINE. [Concomitant]
     Active Substance: LIDOCAINE
     Indication: PRODUCT USED FOR UNKNOWN INDICATION
     Dosage: 1.5%
     Route: 065
  5. MIDAZOLAM. [Concomitant]
     Active Substance: MIDAZOLAM
     Indication: SEDATION
     Dosage: UNK
     Route: 042

REACTIONS (4)
  - Vocal cord paralysis [Recovering/Resolving]
  - Dysphonia [Recovering/Resolving]
  - Dysphagia [Recovered/Resolved]
  - Dyspnoea [Recovered/Resolved]
